FAERS Safety Report 13375923 (Version 2)
Quarter: 2017Q2

REPORT INFORMATION
  Report Type: Report from Study
  Country: US (occurrence: US)
  Receive Date: 20170328
  Receipt Date: 20170427
  Transmission Date: 20170830
  Serious: Yes (Hospitalization)
  Sender: FDA-Public Use
  Company Number: US-ACTELION-A-NJ2017-149869

PATIENT
  Age: 31 Year
  Sex: Female
  Weight: 59.86 kg

DRUGS (2)
  1. VELETRI [Suspect]
     Active Substance: EPOPROSTENOL
     Indication: PULMONARY ARTERIAL HYPERTENSION
     Dosage: 27.7 NG/KG, PER MIN
     Route: 042
  2. VELETRI [Suspect]
     Active Substance: EPOPROSTENOL
     Dosage: 29.5 NG/KG, PER MIN
     Route: 042

REACTIONS (5)
  - Disease progression [Recovering/Resolving]
  - Catheter site discharge [Unknown]
  - Lung transplant [Recovering/Resolving]
  - Pulmonary arterial pressure increased [Unknown]
  - Pulmonary arterial hypertension [Recovering/Resolving]

NARRATIVE: CASE EVENT DATE: 201610
